FAERS Safety Report 6130046-7 (Version None)
Quarter: 2009Q1

REPORT INFORMATION
  Report Type: 
  Country: None (occurrence: None)
  Receive Date: 20090324
  Receipt Date: 20090318
  Transmission Date: 20090719
  Serious: Yes (Death, Hospitalization)
  Sender: FDA-Public Use
  Company Number: US-AVENTIS-200911467US

PATIENT
  Sex: Female
  Weight: 68.04 kg

DRUGS (2)
  1. LANTUS [Suspect]
     Route: 058
     Dates: start: 20090101, end: 20090215
  2. LANTUS [Suspect]
     Route: 058
     Dates: start: 20080101, end: 20090101

REACTIONS (7)
  - ANOREXIA [None]
  - BLOOD GLUCOSE INCREASED [None]
  - BLOOD PRESSURE ABNORMAL [None]
  - DEATH [None]
  - DEHYDRATION [None]
  - DIABETES MELLITUS INADEQUATE CONTROL [None]
  - DRUG INEFFECTIVE [None]
